FAERS Safety Report 11868641 (Version 1)
Quarter: 2015Q4

REPORT INFORMATION
  Report Type: Spontaneous
  Country: US (occurrence: US)
  Receive Date: 20151225
  Receipt Date: 20151225
  Transmission Date: 20160305
  Serious: Yes (Life-Threatening, Hospitalization)
  Sender: FDA-Public Use
  Company Number: US-HOSPIRA-3123541

PATIENT
  Age: 43 Year
  Sex: Male
  Weight: 83 kg

DRUGS (2)
  1. ROPIVACAINE HYDROCHLORIDE. [Suspect]
     Active Substance: ROPIVACAINE HYDROCHLORIDE
     Indication: NERVE BLOCK
     Route: 037
  2. BUPIVACAINE HYDROCHLORIDE. [Suspect]
     Active Substance: BUPIVACAINE HYDROCHLORIDE
     Indication: NERVE BLOCK
     Route: 037

REACTIONS (5)
  - Paralysis [Recovered/Resolved]
  - Bradycardia [Recovered/Resolved]
  - Respiratory arrest [Recovered/Resolved]
  - Incorrect route of drug administration [Recovered/Resolved]
  - Hypotension [Recovered/Resolved]
